FAERS Safety Report 5654168-X (Version None)
Quarter: 2008Q1

REPORT INFORMATION
  Report Type: 
  Country: None (occurrence: None)
  Receive Date: 20080306
  Receipt Date: 20080304
  Transmission Date: 20080703
  Serious: Yes (Life-Threatening, Hospitalization)
  Sender: FDA-Public Use
  Company Number: TW-BOEHRINGER INGELHEIM GMBH, GERMANY-2008-DE-01360GD

PATIENT
  Age: 37 Year
  Sex: Male

DRUGS (1)
  1. MORPHINE [Suspect]
     Route: 042

REACTIONS (13)
  - ACUTE ABDOMEN [None]
  - ALTERED STATE OF CONSCIOUSNESS [None]
  - DRUG ABUSE [None]
  - DYSPNOEA [None]
  - EMPYEMA [None]
  - INFECTION [None]
  - NECROSIS [None]
  - PLEURAL EFFUSION [None]
  - PURULENT PERICARDITIS [None]
  - PYOMYOSITIS [None]
  - SEPSIS [None]
  - SINUS TACHYCARDIA [None]
  - STAPHYLOCOCCAL MEDIASTINITIS [None]
